FAERS Safety Report 5926668-6 (Version None)
Quarter: 2008Q4

REPORT INFORMATION
  Report Type: 
  Country: None (occurrence: None)
  Receive Date: 20081022
  Receipt Date: 20081010
  Transmission Date: 20090506
  Serious: Yes (Other)
  Sender: FDA-Public Use
  Company Number: BR-ROCHE-591620

PATIENT
  Age: 28 Year
  Sex: Female
  Weight: 92 kg

DRUGS (3)
  1. ORLISTAT [Suspect]
     Indication: WEIGHT CONTROL
     Route: 048
     Dates: start: 20080701, end: 20080801
  2. METFORMIN HYDROCHLORIDE [Concomitant]
     Route: 048
  3. SIBUTRAMINE [Concomitant]
     Route: 048

REACTIONS (2)
  - HEADACHE [None]
  - HYPERTENSION [None]
